FAERS Safety Report 5839275-0 (Version None)
Quarter: 2008Q3

REPORT INFORMATION
  Report Type: 
  Country: None (occurrence: None)
  Receive Date: 20080808
  Receipt Date: 20080730
  Transmission Date: 20090109
  Serious: Yes (Other)
  Sender: FDA-Public Use
  Company Number: US-PFIZER INC-2008063672

PATIENT
  Sex: Female
  Weight: 68.181 kg

DRUGS (6)
  1. LIPITOR [Suspect]
     Indication: BLOOD CHOLESTEROL INCREASED
     Dosage: FREQ:DAILY
     Route: 048
  2. TRIAMTERENE AND HYDROCHLOROTHIAZIDE [Concomitant]
  3. POTASSIUM CHLORIDE [Concomitant]
  4. LASIX [Concomitant]
  5. LEVOXYL [Concomitant]
  6. DRUG, UNSPECIFIED [Concomitant]

REACTIONS (8)
  - DRUG EFFECT DECREASED [None]
  - HERPES ZOSTER [None]
  - HYPOACUSIS [None]
  - INCREASED APPETITE [None]
  - NERVE INJURY [None]
  - NEURALGIA [None]
  - WEIGHT DECREASED [None]
  - WRONG TECHNIQUE IN DRUG USAGE PROCESS [None]
